FAERS Safety Report 7110905-9 (Version None)
Quarter: 2010Q4

REPORT INFORMATION
  Report Type: 
  Country: None (occurrence: None)
  Receive Date: 20101118
  Receipt Date: 20101108
  Transmission Date: 20110411
  Serious: Yes (Other)
  Sender: FDA-Public Use
  Company Number: US-SANOFI-AVENTIS-2010SA040709

PATIENT
  Age: 74 Year
  Sex: Female
  Weight: 81 kg

DRUGS (6)
  1. MULTAQ [Suspect]
     Indication: ATRIAL FIBRILLATION
     Route: 048
     Dates: start: 20100707
  2. METOPROLOL [Concomitant]
     Indication: ATRIAL FIBRILLATION
     Route: 048
     Dates: start: 20100608
  3. RESTASIS [Concomitant]
     Dates: start: 20080101
  4. SIMVASTATIN [Concomitant]
     Route: 048
  5. SYNTHROID [Concomitant]
     Indication: HYPOTHYROIDISM
     Route: 048
     Dates: start: 19900101
  6. ASPIRIN [Concomitant]
     Route: 048

REACTIONS (16)
  - ANXIETY [None]
  - ATRIAL FIBRILLATION [None]
  - BARRETT'S OESOPHAGUS [None]
  - BLOOD PRESSURE INCREASED [None]
  - CHEST PAIN [None]
  - DEVICE FAILURE [None]
  - DYSPEPSIA [None]
  - DYSPHAGIA [None]
  - EMPHYSEMA [None]
  - HEART RATE INCREASED [None]
  - MUSCULAR WEAKNESS [None]
  - OESOPHAGEAL STENOSIS [None]
  - OESOPHAGITIS [None]
  - PRURITUS [None]
  - PYREXIA [None]
  - SLEEP APNOEA SYNDROME [None]
